FAERS Safety Report 19455938 (Version 3)
Quarter: 2021Q3

REPORT INFORMATION
  Report Type: Report from Study
  Country: AR (occurrence: AR)
  Receive Date: 20210624
  Receipt Date: 20210831
  Transmission Date: 20211014
  Serious: Yes (Death, Other)
  Sender: FDA-Public Use
  Company Number: AR-GILEAD-2021-0537078

PATIENT
  Age: 58 Year
  Sex: Male

DRUGS (23)
  1. REMDESIVIR. [Suspect]
     Active Substance: REMDESIVIR
     Indication: COVID-19
     Dosage: UNK, QD
     Route: 042
     Dates: start: 20210525
  2. BLINDED ABATACEPT [Suspect]
     Active Substance: ABATACEPT
     Indication: COVID-19
     Dosage: UNK UNK, ONCE
     Route: 042
     Dates: start: 20210525
  3. AMPICILLIN SULBACTAM [Concomitant]
     Active Substance: AMPICILLIN SODIUM\SULBACTAM SODIUM
  4. NOREPINEPHRINE BITARTRATE. [Concomitant]
     Active Substance: NOREPINEPHRINE BITARTRATE
  5. VASOPRESSIN. [Concomitant]
     Active Substance: VASOPRESSIN
  6. CLARITHROMYCIN. [Concomitant]
     Active Substance: CLARITHROMYCIN
  7. IMIPENEM [Concomitant]
     Active Substance: IMIPENEM
  8. PANCURONIUM [Concomitant]
     Active Substance: PANCURONIUM
  9. PLACEBO [Suspect]
     Active Substance: UNSPECIFIED INGREDIENT
     Indication: COVID-19
     Dosage: UNK UNK, ONCE
     Route: 042
     Dates: start: 20210525
  10. HEPARIN [Concomitant]
     Active Substance: HEPARIN SODIUM
  11. LOSARTAN. [Concomitant]
     Active Substance: LOSARTAN
  12. SODIUM CHLORIDE. [Concomitant]
     Active Substance: SODIUM CHLORIDE
  13. CLONAZEPAM. [Concomitant]
     Active Substance: CLONAZEPAM
  14. MIDAZOLAM. [Concomitant]
     Active Substance: MIDAZOLAM
  15. MORPHINE [Concomitant]
     Active Substance: MORPHINE
  16. AMIKACIN. [Concomitant]
     Active Substance: AMIKACIN
  17. OXYGEN. [Concomitant]
     Active Substance: OXYGEN
  18. COLISTIN [Concomitant]
     Active Substance: COLISTIN
  19. DEXAMETHASONE. [Concomitant]
     Active Substance: DEXAMETHASONE
  20. DIAZEPAM. [Concomitant]
     Active Substance: DIAZEPAM
  21. RANITIDINE. [Concomitant]
     Active Substance: RANITIDINE
  22. REMIFENTANIL [Concomitant]
     Active Substance: REMIFENTANIL
  23. VANCOMYCIN [Concomitant]
     Active Substance: VANCOMYCIN

REACTIONS (1)
  - Pneumonia [Fatal]

NARRATIVE: CASE EVENT DATE: 20210607
